FAERS Safety Report 13145283 (Version 3)
Quarter: 2017Q1

REPORT INFORMATION
  Report Type: Report from Study
  Country: US (occurrence: US)
  Receive Date: 20170124
  Receipt Date: 20170224
  Transmission Date: 20170428
  Serious: Yes (Death, Hospitalization, Other)
  Sender: FDA-Public Use
  Company Number: US-009507513-1612USA006389

PATIENT
  Age: 72 Year
  Sex: Male

DRUGS (22)
  1. DURAGESIC [Concomitant]
     Active Substance: FENTANYL
     Dosage: 1 DF, Q3D
  2. TRELSTAR [Concomitant]
     Active Substance: TRIPTORELIN PAMOATE
     Dosage: INJECT INTRAMUSCULARLY EVERY 3 MONTHS
     Route: 030
  3. TOPROL XL [Concomitant]
     Active Substance: METOPROLOL SUCCINATE
     Dosage: TAKE 1 TABLET BY MOUTH DAILY
  4. EFFEXOR XR [Concomitant]
     Active Substance: VENLAFAXINE HYDROCHLORIDE
     Dosage: TAKE 1 CAPSULE BY MOUTH DAILY
     Route: 048
  5. MORPHINE SULFATE. [Concomitant]
     Active Substance: MORPHINE SULFATE
     Dosage: TAKE 2.5-5 ML PO Q 4 HOURS AS NEEDED FOR DISCOMFORT
  6. PEMBROLIZUMAB. [Concomitant]
     Active Substance: PEMBROLIZUMAB
     Dosage: 150 MG BY IV ROUTE ONCE.PATIENT TO RECEIVE 139.4 MG IV EVERY 3 WEEKS
  7. MIRALAX [Concomitant]
     Active Substance: POLYETHYLENE GLYCOL 3350
     Dosage: 17 G, QD
     Route: 048
  8. K-TAB [Concomitant]
     Active Substance: POTASSIUM CHLORIDE
     Dosage: TAKE 1 TABLET BY MOUTH DAILY
     Route: 048
  9. SENOKOT S (DOCUSATE SODIUM (+) SENNA) [Concomitant]
     Dosage: TAKE 1-2 TABLETS BY MOUTH NIGHTLY AS NEEDED
     Route: 048
  10. TRELSTAR [Concomitant]
     Active Substance: TRIPTORELIN PAMOATE
     Dosage: UNK
     Dates: start: 2013
  11. CALCIUM (UNSPECIFIED) [Concomitant]
     Active Substance: CALCIUM
     Dosage: TAKE 1 TABLET BY MOUTH 2 TIMES DAILY
     Route: 048
  12. FLONASE [Concomitant]
     Active Substance: FLUTICASONE PROPIONATE
     Dosage: INSTILL 1 SPRAY IN EACH NOSTRIL DAILY.
  13. DELTASONE [Concomitant]
     Active Substance: PREDNISONE
     Dosage: TAKE 3 TABLETS BY MOUTH 2 TIMES DAILY
     Route: 048
  14. ZOLEDRONIC ACID [Concomitant]
     Active Substance: ZOLEDRONIC ACID
     Dosage: BY IV ROUTE EVERY 3 MONTHS
     Route: 042
  15. ADVAIR HFA [Concomitant]
     Active Substance: FLUTICASONE PROPIONATE\SALMETEROL XINAFOATE
     Dosage: INHALE 1 PUFF DAILY
  16. IMODIUM [Concomitant]
     Active Substance: LOPERAMIDE HYDROCHLORIDE
     Dosage: TAKE 2 MG BY MOUTH AS NEEDED
  17. MAGNESIUM OXIDE. [Concomitant]
     Active Substance: MAGNESIUM OXIDE
     Dosage: TAKE 1 TABLET BY MOUTH DAILY
     Route: 048
  18. MEGACE [Concomitant]
     Active Substance: MEGESTROL ACETATE
     Dosage: TAKE 20 ML BY MOUTH DAILY
  19. ZOFRAN [Concomitant]
     Active Substance: ONDANSETRON HYDROCHLORIDE
     Dosage: TAKE 1 TABLET BY MOUTH 3 TIMES DAILY AS NEEDED. PLACE ON TONGUE AND ALLOW TO DISSOLVE
     Route: 048
  20. KEYTRUDA [Suspect]
     Active Substance: PEMBROLIZUMAB
     Dosage: 139.40 MG, Q3W
     Route: 042
     Dates: start: 2016
  21. KEYTRUDA [Suspect]
     Active Substance: PEMBROLIZUMAB
     Indication: PROSTATE CANCER
     Dosage: 150 MG, ONCE
     Route: 042
     Dates: start: 201608, end: 201608
  22. MOTRIN [Concomitant]
     Active Substance: IBUPROFEN
     Dosage: TAKE 200 MG BY .MOUTH 4 TIMES. DAILY AS NEEDED

REACTIONS (23)
  - Peripheral swelling [Unknown]
  - Platelet count abnormal [Unknown]
  - Mean cell volume abnormal [Unknown]
  - Musculoskeletal pain [Recovering/Resolving]
  - Back pain [Recovering/Resolving]
  - Hot flush [Unknown]
  - Haematocrit abnormal [Unknown]
  - Blood bicarbonate decreased [Unknown]
  - Liver function test increased [Recovering/Resolving]
  - Urinary incontinence [Unknown]
  - Haemoglobin abnormal [Unknown]
  - Red blood cell abnormality [Unknown]
  - Red cell distribution width abnormal [Unknown]
  - Blood urea abnormal [Unknown]
  - Malignant neoplasm progression [Unknown]
  - Blood creatinine increased [Unknown]
  - Blood glucose abnormal [Unknown]
  - Mean cell haemoglobin [Unknown]
  - Death [Fatal]
  - Thrombocytopenia [Unknown]
  - Hypomagnesaemia [Unknown]
  - Protein total abnormal [Unknown]
  - Product use issue [Unknown]

NARRATIVE: CASE EVENT DATE: 20160926
